FAERS Safety Report 7943571-0 (Version None)
Quarter: 2011Q4

REPORT INFORMATION
  Report Type: 
  Country: None (occurrence: None)
  Receive Date: 20111122
  Receipt Date: 20110706
  Transmission Date: 20120403
  Serious: No
  Sender: FDA-Public Use
  Company Number: PHHY2011US60541

PATIENT
  Age: 59 Year
  Sex: Female

DRUGS (5)
  1. ALPRAZOLAM [Concomitant]
  2. SERTRALINE HYDROCHLORIDE [Concomitant]
  3. LYRICA [Concomitant]
  4. NEXIUM [Concomitant]
  5. GILENYA [Suspect]
     Indication: MULTIPLE SCLEROSIS
     Dosage: 0.5 MG, DAILY, ORAL
     Route: 048
     Dates: start: 20110610

REACTIONS (1)
  - OROPHARYNGEAL PAIN [None]
